FAERS Safety Report 4886569-1 (Version None)
Quarter: 2006Q1

REPORT INFORMATION
  Report Type: 
  Country: None (occurrence: None)
  Receive Date: 20060120
  Receipt Date: 20060116
  Transmission Date: 20060701
  Serious: Yes (Other)
  Sender: FDA-Public Use
  Company Number: US-JNJFOC-20060103364

PATIENT
  Age: 20 Year
  Sex: Male

DRUGS (4)
  1. LEVAQUIN [Suspect]
     Indication: ACUTE SINUSITIS
     Dates: start: 20060101, end: 20060101
  2. ADVAIR DISKUS 250/50 [Suspect]
     Route: 055
  3. ADVAIR DISKUS 250/50 [Suspect]
     Indication: BRONCHITIS
     Route: 055
  4. MEDROL [Concomitant]
     Indication: DRUG USE FOR UNKNOWN INDICATION

REACTIONS (3)
  - BLOOD CREATINE PHOSPHOKINASE INCREASED [None]
  - SYNCOPE [None]
  - TONIC CONVULSION [None]
